FAERS Safety Report 6730187-7 (Version None)
Quarter: 2010Q2

REPORT INFORMATION
  Report Type: 
  Country: None (occurrence: None)
  Receive Date: 20100513
  Receipt Date: 20100430
  Transmission Date: 20101027
  Serious: Yes (Other)
  Sender: FDA-Public Use
  Company Number: 2QLT2010US01009

PATIENT
  Age: 82 Year
  Sex: Female
  Weight: 60.782 kg

DRUGS (2)
  1. VISUDYNE [Suspect]
     Indication: MACULAR DEGENERATION
     Dosage: 9.6 MG DAILY IV
     Route: 042
     Dates: start: 20091019, end: 20091019
  2. AVASTIN [Suspect]
     Indication: MACULAR DEGENERATION
     Dosage: 1.25 MG, DAILY EY
     Dates: start: 20090908, end: 20090908

REACTIONS (2)
  - RETINAL OEDEMA [None]
  - VISUAL ACUITY REDUCED [None]
